FAERS Safety Report 9833059 (Version 1)
Quarter: 2014Q1

REPORT INFORMATION
  Report Type: Spontaneous
  Country: US (occurrence: US)
  Receive Date: 20140121
  Receipt Date: 20140121
  Transmission Date: 20141002
  Serious: Yes (Other)
  Sender: FDA-Public Use
  Company Number: PHHY2014US004115

PATIENT
  Age: 68 Year
  Sex: Male

DRUGS (10)
  1. LIDOCAINE [Suspect]
     Indication: CARDIAC ARREST
     Dosage: 2 G, ONCE/SINGLE
     Route: 041
  2. LIDOCAINE [Suspect]
     Dosage: 1-2 MG/MIN, UNK
     Route: 041
  3. DEXMEDETOMIDINE [Suspect]
     Indication: SEDATION
     Dosage: 0.8 UG/KG, PER HR
  4. AMIODARONE [Concomitant]
     Dosage: 150 MG, ONCE/SINGLE
     Route: 042
  5. AMIODARONE [Concomitant]
     Dosage: 0.5-1 MG/MIN, UNK
     Route: 042
  6. INSULIN [Concomitant]
  7. FUROSEMIDE [Concomitant]
     Dosage: 20 MG, PER HR
     Route: 042
  8. NOREPINEPHRINE [Concomitant]
     Dosage: 0.2-0.8 UG/KG/MIN, UNK
  9. ASPIRIN [Concomitant]
     Dosage: 81 MG, QD
     Route: 048
  10. ASPIRIN [Concomitant]
     Dosage: 325 MG, QD
     Route: 048

REACTIONS (7)
  - Encephalopathy [Recovering/Resolving]
  - Hyperthermia [Recovering/Resolving]
  - Unresponsive to stimuli [Recovering/Resolving]
  - Ischaemic stroke [Recovering/Resolving]
  - Hemiparesis [Not Recovered/Not Resolved]
  - Hypotonia [Recovering/Resolving]
  - Drug level increased [Unknown]
